FAERS Safety Report 15763848 (Version 1)
Quarter: 2018Q4

REPORT INFORMATION
  Report Type: Spontaneous
  Country: US (occurrence: US)
  Receive Date: 20181227
  Receipt Date: 20181227
  Transmission Date: 20190205
  Serious: Yes (Other)
  Sender: FDA-Public Use
  Company Number: US-TEVA-2018-US-887675

PATIENT
  Age: 37 Year
  Sex: Male

DRUGS (3)
  1. DIPHENHYDRAMINE. [Suspect]
     Active Substance: DIPHENHYDRAMINE
     Route: 030
  2. HALOPERIDOL. [Suspect]
     Active Substance: HALOPERIDOL
     Route: 030
  3. BENZTROPINE. [Suspect]
     Active Substance: BENZTROPINE
     Route: 048

REACTIONS (1)
  - Anticholinergic syndrome [Recovered/Resolved]
